FAERS Safety Report 9586204 (Version 1)
Quarter: 2013Q3

REPORT INFORMATION
  Report Type: Spontaneous
  Country: AU (occurrence: None)
  Receive Date: 20130926
  Receipt Date: 20130926
  Transmission Date: 20140515
  Serious: Yes (Hospitalization)
  Sender: FDA-Public Use
  Company Number: 2012-01780

PATIENT
  Age: 31 Year
  Sex: Female

DRUGS (2)
  1. VALPROATE SODIUM [Suspect]
     Indication: MANIA
  2. RISPERIDONE [Suspect]
     Indication: MANIA

REACTIONS (1)
  - Extrapyramidal disorder [None]
